FAERS Safety Report 9567658 (Version 1)
Quarter: 2013Q3

REPORT INFORMATION
  Report Type: Spontaneous
  Country: US (occurrence: US)
  Receive Date: 20130930
  Receipt Date: 20130930
  Transmission Date: 20140515
  Serious: No
  Sender: FDA-Public Use
  Company Number: US-AMGEN-USASP2012082778

PATIENT
  Age: 69 Year
  Sex: Female

DRUGS (3)
  1. ENBREL [Suspect]
     Indication: RHEUMATOID ARTHRITIS
     Dosage: 50 MG, QWK
     Dates: start: 20111001
  2. METHOTREXATE [Concomitant]
     Dosage: 17.5 UNK, UNK
     Dates: start: 2010
  3. PLAQUENIL                          /00072602/ [Concomitant]
     Dosage: 400 UNK, UNK
     Dates: start: 2002

REACTIONS (5)
  - Eye pain [Not Recovered/Not Resolved]
  - Facial pain [Not Recovered/Not Resolved]
  - Ear pain [Not Recovered/Not Resolved]
  - Tooth infection [Recovered/Resolved]
  - Nasopharyngitis [Not Recovered/Not Resolved]
